FAERS Safety Report 4421595-8 (Version None)
Quarter: 2004Q3

REPORT INFORMATION
  Report Type: 
  Country: None (occurrence: None)
  Receive Date: 20040804
  Receipt Date: 20040722
  Transmission Date: 20050211
  Serious: Yes (Life-Threatening)
  Sender: FDA-Public Use
  Company Number: FR-JNJFOC-20040706507

PATIENT
  Age: 51 Year
  Sex: Female

DRUGS (4)
  1. DURAGESIC [Suspect]
     Indication: DRUG USE FOR UNKNOWN INDICATION
     Dosage: 50 U/HR, 1 IN 3 DAY, TRANSDERMAL
     Route: 062
     Dates: start: 20040612, end: 20040612
  2. MORPHINE SULFATE [Suspect]
     Indication: DRUG USE FOR UNKNOWN INDICATION
     Dosage: 60 MG, 1 IN 1 DAY, ORAL
     Route: 048
     Dates: end: 20040612
  3. ACTISKENAN (MORPHINE SULFATE) [Concomitant]
  4. ACETAMINOPHEN [Concomitant]

REACTIONS (6)
  - BRADYPNOEA [None]
  - COMA [None]
  - DRUG INTERACTION [None]
  - HEMIPARESIS [None]
  - MIOSIS [None]
  - OVERDOSE [None]
